FAERS Safety Report 18798234 (Version 1)
Quarter: 2021Q1

REPORT INFORMATION
  Report Type: Spontaneous
  Country: IT (occurrence: IT)
  Receive Date: 20210128
  Receipt Date: 20210128
  Transmission Date: 20210419
  Serious: Yes (Disabling, Other)
  Sender: FDA-Public Use
  Company Number: IT-ROCHE-2757066

PATIENT
  Sex: Male

DRUGS (1)
  1. RIVOTRIL [Suspect]
     Active Substance: CLONAZEPAM
     Indication: PRODUCT USED FOR UNKNOWN INDICATION
     Route: 065
     Dates: start: 202002, end: 202005

REACTIONS (10)
  - Headache [Unknown]
  - Cold sweat [Unknown]
  - Disability [Unknown]
  - Malaise [Unknown]
  - Syncope [Unknown]
  - Heart rate increased [Unknown]
  - Dyspnoea [Unknown]
  - Hyperhidrosis [Unknown]
  - Anxiety [Unknown]
  - Dizziness [Unknown]

NARRATIVE: CASE EVENT DATE: 202007
